FAERS Safety Report 20073085 (Version 1)
Quarter: 2021Q4

REPORT INFORMATION
  Report Type: Spontaneous
  Country: TR (occurrence: TR)
  Receive Date: 20211116
  Receipt Date: 20211116
  Transmission Date: 20220304
  Serious: Yes (Other)
  Sender: FDA-Public Use
  Company Number: TR-BIOVITRUM-2021TR10689

PATIENT
  Age: 18 Year
  Sex: Male

DRUGS (2)
  1. KINERET [Suspect]
     Active Substance: ANAKINRA
     Indication: Familial mediterranean fever
  2. KINERET [Suspect]
     Active Substance: ANAKINRA

REACTIONS (2)
  - Amyloidosis [Unknown]
  - Loss of therapeutic response [Unknown]
